FAERS Safety Report 21629815 (Version 1)
Quarter: 2022Q4

REPORT INFORMATION
  Report Type: Spontaneous
  Country: US (occurrence: None)
  Receive Date: 20221122
  Receipt Date: 20221122
  Transmission Date: 20230113
  Serious: Yes (Life-Threatening)
  Sender: FDA-Public Use
  Company Number: None

PATIENT
  Age: 38 Year
  Sex: Male
  Weight: 158.76 kg

DRUGS (1)
  1. PREDNISONE [Suspect]
     Active Substance: PREDNISONE
     Indication: Hypersensitivity
     Route: 048
     Dates: start: 20130319, end: 20130322

REACTIONS (10)
  - Cough [None]
  - Dyspnoea [None]
  - Rash [None]
  - Anxiety [None]
  - Swelling face [None]
  - Swelling face [None]
  - Thirst [None]
  - Chromaturia [None]
  - Insomnia [None]
  - Pulmonary congestion [None]

NARRATIVE: CASE EVENT DATE: 20130319
